FAERS Safety Report 6738498-6 (Version None)
Quarter: 2010Q2

REPORT INFORMATION
  Report Type: 
  Country: None (occurrence: None)
  Receive Date: 20100524
  Receipt Date: 20100512
  Transmission Date: 20101027
  Serious: Yes (Other)
  Sender: FDA-Public Use
  Company Number: PHFR2010GB00634

PATIENT
  Sex: Male

DRUGS (1)
  1. NEORAL [Suspect]
     Indication: HEART TRANSPLANT
     Dosage: UNK

REACTIONS (4)
  - DEHYDRATION [None]
  - HIP ARTHROPLASTY [None]
  - POST PROCEDURAL COMPLICATION [None]
  - SEPSIS [None]
